FAERS Safety Report 8632900 (Version 2)
Quarter: 2014Q1

REPORT INFORMATION
  Report Type: Report from Study
  Country: CA (occurrence: CA)
  Receive Date: 20120625
  Receipt Date: 20140322
  Transmission Date: 20141002
  Serious: Yes (Death, Other)
  Sender: FDA-Public Use
  Company Number: PHHY2011CA116948

PATIENT
  Age: 77 Year
  Sex: Female

DRUGS (6)
  1. ACLASTA [Suspect]
     Indication: OSTEOPOROSIS
     Dosage: 5 MG,YEARLY
     Route: 042
     Dates: start: 20080627
  2. ACLASTA [Suspect]
     Dosage: 5 MG,YEARLY
     Route: 042
     Dates: start: 20090626
  3. ACLASTA [Suspect]
     Dosage: 5 MG,YEARLY
     Route: 042
     Dates: start: 20100828
  4. ACLASTA [Suspect]
     Dosage: 5 MG,YEARLY
     Route: 042
     Dates: start: 20110613
  5. ACLASTA [Suspect]
     Dosage: 5 MG, YEARLY
     Route: 042
     Dates: start: 20120619
  6. ACLASTA [Suspect]
     Dosage: 5 MG, YEARLY
     Route: 042
     Dates: start: 20130618

REACTIONS (4)
  - Death [Fatal]
  - Fall [Unknown]
  - Wrist fracture [Unknown]
  - Inappropriate schedule of drug administration [Unknown]
